FAERS Safety Report 9526590 (Version 1)
Quarter: 2013Q3

REPORT INFORMATION
  Report Type: Spontaneous
  Country: US (occurrence: US)
  Receive Date: 20130916
  Receipt Date: 20130916
  Transmission Date: 20140515
  Serious: No
  Sender: FDA-Public Use
  Company Number: US-PFIZER INC-2013263289

PATIENT
  Age: 57 Year
  Sex: Female
  Weight: 66.21 kg

DRUGS (1)
  1. LYRICA [Suspect]
     Indication: FIBROMYALGIA
     Dosage: UNK, 3X/DAY
     Route: 048
     Dates: start: 2012

REACTIONS (2)
  - Stress [Unknown]
  - Fibromyalgia [Unknown]
